FAERS Safety Report 8276026-7 (Version None)
Quarter: 2012Q2

REPORT INFORMATION
  Report Type: 
  Country: None (occurrence: None)
  Receive Date: 20120406
  Receipt Date: 20120327
  Transmission Date: 20120825
  Serious: Yes (Hospitalization)
  Sender: FDA-Public Use
  Company Number: WAES 1203USA03348

PATIENT
  Age: 66 Year
  Sex: Male
  Weight: 83.0083 kg

DRUGS (23)
  1. OXYCODONE HCL [Concomitant]
  2. POTASSIUM CITRATE [Concomitant]
  3. ATIVAN [Concomitant]
  4. CITRACAL [Concomitant]
  5. OMEPRAZOLE [Concomitant]
  6. DECADRON [Suspect]
     Indication: MYELOMA RECURRENCE
     Dosage: 20 MG/DAILY/PO
     Route: 048
     Dates: start: 20111031, end: 20120303
  7. BORTEZOMIB [Suspect]
     Indication: MULTIPLE MYELOMA
     Dosage: 0.7 MG/ M [2]/
  8. BORTEZOMIB [Suspect]
     Indication: MYELOMA RECURRENCE
     Dosage: 0.7 MG/ M [2]/
  9. ZITHROMAX [Concomitant]
  10. LYRICA [Concomitant]
  11. CHOLECALCIFEROL [Concomitant]
  12. HYDROCHLOROTHIAZIDE [Concomitant]
  13. FOLIC ACID [Concomitant]
  14. STUDY DRUG (UNSPECIFIED) [Suspect]
     Indication: MYELOMA RECURRENCE
     Dosage: 100 MG/DAILY/IV
     Route: 042
     Dates: start: 20111031
  15. STUDY DRUG (UNSPECIFIED) [Suspect]
     Indication: MULTIPLE MYELOMA
     Dosage: 100 MG/DAILY/IV
     Route: 042
     Dates: start: 20111031
  16. ACETAMINOPHEN [Concomitant]
  17. ASPIRIN [Concomitant]
  18. GLUCOSAMINE [Concomitant]
  19. ACYCLOVIR [Concomitant]
  20. THIAMINE HCL [Concomitant]
  21. AREDIA [Concomitant]
  22. AUGMENTIN '125' [Concomitant]
  23. OMEGA-3 MARINE TRIGLYCERIDES [Concomitant]

REACTIONS (1)
  - PNEUMONIA [None]
